FAERS Safety Report 13402583 (Version 2)
Quarter: 2017Q2

REPORT INFORMATION
  Report Type: Report from Study
  Country: US (occurrence: US)
  Receive Date: 20170404
  Receipt Date: 20170418
  Transmission Date: 20170830
  Serious: Yes (Hospitalization, Other)
  Sender: FDA-Public Use
  Company Number: US-GILEAD-2017-0265664

PATIENT
  Age: 49 Year
  Sex: Male
  Weight: 65.45 kg

DRUGS (15)
  1. AZITHROMYCIN ANHYDROUS. [Concomitant]
     Active Substance: AZITHROMYCIN ANHYDROUS
     Dosage: 1TABLET 3 TIMES WEEKLY
     Route: 048
     Dates: start: 20071029
  2. TRADJENTA [Concomitant]
     Active Substance: LINAGLIPTIN
     Dosage: 1 TABLET, QD
     Route: 048
     Dates: start: 20140619
  3. VITAMIN D3 [Concomitant]
     Active Substance: CHOLECALCIFEROL
     Dosage: 5000 UNITS, BID
     Route: 048
  4. AZTREONAM LYSINE [Suspect]
     Active Substance: AZTREONAM LYSINE
     Indication: PSEUDOMONAS INFECTION
  5. SODIUM CHLORIDE. [Concomitant]
     Active Substance: SODIUM CHLORIDE
     Dosage: 1 VIAL, BID
     Dates: start: 20071008
  6. VITAMINS NOS [Concomitant]
     Active Substance: VITAMINS
     Dosage: 1 TABLET, QD
     Dates: start: 20070101
  7. QVAR [Concomitant]
     Active Substance: BECLOMETHASONE DIPROPIONATE
     Dosage: 2 PUFFS, BID
     Route: 055
     Dates: start: 20130107
  8. MEPHYTON [Concomitant]
     Active Substance: PHYTONADIONE
     Dosage: 1 TABLET 3 TIMES A WEEK
     Route: 048
     Dates: start: 20070101
  9. VITAMIN E                          /00110501/ [Concomitant]
     Active Substance: TOCOPHEROL
     Dosage: 400 UNITS, QD
     Route: 048
     Dates: start: 20160429
  10. ALBUTEROL                          /00139501/ [Concomitant]
     Active Substance: ALBUTEROL
     Dosage: 1 VIAL, QID
     Route: 055
     Dates: start: 20070101
  11. BETHKIS [Concomitant]
     Active Substance: TOBRAMYCIN
     Dosage: 1 VIAL, BID FOR 28 DAYS EVERY OTHER MONTH
     Route: 055
     Dates: start: 20160215
  12. VITAMIN A                          /00056001/ [Concomitant]
     Active Substance: RETINOL
     Dosage: 1 TABLET (1000 UNITS), QD
     Route: 048
     Dates: start: 20160429
  13. AZTREONAM LYSINE [Suspect]
     Active Substance: AZTREONAM LYSINE
     Indication: CYSTIC FIBROSIS LUNG
     Dosage: 75 MG, BID (FOR 28 DAYS EVERY OTHER MONTH)
     Route: 055
     Dates: start: 20150908
  14. PANCREAZE                          /00150201/ [Concomitant]
     Dosage: 21000 UNIT 7 CAPSULES WITH MEALS AND 4 CAPSULES WITH SNACKS
     Dates: start: 20101103
  15. ZYRTEC [Concomitant]
     Active Substance: CETIRIZINE HYDROCHLORIDE
     Dosage: 10 MG, QD
     Route: 048
     Dates: start: 20140619

REACTIONS (1)
  - Cystic fibrosis [Recovered/Resolved]

NARRATIVE: CASE EVENT DATE: 20161103
